FAERS Safety Report 25964201 (Version 2)
Quarter: 2025Q4

REPORT INFORMATION
  Report Type: Spontaneous
  Country: JP (occurrence: JP)
  Receive Date: 20251027
  Receipt Date: 20251117
  Transmission Date: 20260117
  Serious: Yes (Hospitalization)
  Sender: BIOVITRUM
  Company Number: JP-BIOVITRUM-2025-JP-014679

PATIENT
  Age: 89 Year
  Sex: Female

DRUGS (2)
  1. DOPTELET [Suspect]
     Active Substance: AVATROMBOPAG MALEATE
     Indication: Immune thrombocytopenia
     Dosage: 40 MG PER DAY STARTED AROUND 01-OCT-2025
     Route: 048
     Dates: end: 20251016
  2. DOPTELET [Suspect]
     Active Substance: AVATROMBOPAG MALEATE
     Dosage: THE PRESCRIPTION WAS STARTED AROUND 10-SEP-2025
     Route: 048
     Dates: start: 20250909

REACTIONS (1)
  - Amylase increased [Recovering/Resolving]

NARRATIVE: CASE EVENT DATE: 20251004
